FAERS Safety Report 9758532 (Version 1)
Quarter: 2013Q4

REPORT INFORMATION
  Report Type: Spontaneous
  Country: US (occurrence: None)
  Receive Date: 20131216
  Receipt Date: 20131216
  Transmission Date: 20140711
  Serious: Yes (Death)
  Sender: FDA-Public Use
  Company Number: CABO-13002632

PATIENT
  Age: 79 Year
  Sex: Male

DRUGS (5)
  1. COMETRIQ (CABOZANTINIB) CAPSULE [Suspect]
     Indication: PROSTATE CANCER
     Dosage: 100 MG, QD, ORAL
  2. LACTULOSE (LACTULOSE) [Concomitant]
  3. LUPRON (LEUPRORELIN ACETATE) [Concomitant]
  4. MEGACE (MEGESTROL ACETATE) [Concomitant]
  5. PREDNISONE (PREDNISONE) [Concomitant]

REACTIONS (6)
  - Malignant neoplasm progression [None]
  - General physical health deterioration [None]
  - Speech disorder [None]
  - Nausea [None]
  - Asthenia [None]
  - Decreased appetite [None]
